FAERS Safety Report 11137007 (Version 3)
Quarter: 2015Q2

REPORT INFORMATION
  Report Type: Report from Study
  Country: US (occurrence: US)
  Receive Date: 20150526
  Receipt Date: 20150618
  Transmission Date: 20150821
  Serious: Yes (Hospitalization, Other)
  Sender: FDA-Public Use
  Company Number: US-ALEXION PHARMACEUTICALS INC.-A201501836

PATIENT

DRUGS (1)
  1. SOLIRIS [Suspect]
     Active Substance: ECULIZUMAB
     Indication: PAROXYSMAL NOCTURNAL HAEMOGLOBINURIA
     Dosage: 900 MG, Q2W
     Route: 042
     Dates: start: 2007

REACTIONS (24)
  - Haemoglobin decreased [Unknown]
  - Cytokine storm [Unknown]
  - Anaemia [Unknown]
  - Malaise [Unknown]
  - Pain in extremity [Unknown]
  - Chromaturia [Unknown]
  - Platelet count abnormal [Unknown]
  - Neutrophil count abnormal [Unknown]
  - Pallor [Unknown]
  - Unevaluable event [Unknown]
  - Incorrect drug administration duration [Not Recovered/Not Resolved]
  - Fatigue [Unknown]
  - Blood lactate dehydrogenase increased [Unknown]
  - Vomiting [Unknown]
  - Anxiety [Unknown]
  - Blood bilirubin abnormal [Unknown]
  - Pyrexia [Recovered/Resolved]
  - Chills [Not Recovered/Not Resolved]
  - White blood cell disorder [Unknown]
  - Blood lactate dehydrogenase abnormal [Unknown]
  - Wrong technique in drug usage process [Not Recovered/Not Resolved]
  - Haemoglobin decreased [Not Recovered/Not Resolved]
  - Pyrexia [Not Recovered/Not Resolved]
  - Haemoglobin abnormal [Unknown]

NARRATIVE: CASE EVENT DATE: 20150519
